FAERS Safety Report 17483915 (Version 4)
Quarter: 2022Q4

REPORT INFORMATION
  Report Type: Spontaneous
  Country: US (occurrence: None)
  Receive Date: 20200302
  Receipt Date: 20221028
  Transmission Date: 20230112
  Serious: Yes (Death, Other)
  Sender: FDA-Public Use
  Company Number: 2020SE29221

PATIENT
  Age: 71 Year
  Sex: Male
  Weight: 120 kg

DRUGS (35)
  1. PRILOSEC [Suspect]
     Active Substance: OMEPRAZOLE MAGNESIUM
     Indication: Gastrooesophageal reflux disease
     Route: 048
     Dates: start: 200703, end: 201703
  2. PRILOSEC [Suspect]
     Active Substance: OMEPRAZOLE MAGNESIUM
     Indication: Gastrooesophageal reflux disease
     Route: 048
     Dates: start: 2007, end: 2017
  3. HYDROCODONE BITARTRATE AND ACETAMINOPHEN [Concomitant]
     Active Substance: ACETAMINOPHEN\HYDROCODONE BITARTRATE
  4. ATENOLOL [Concomitant]
     Active Substance: ATENOLOL
  5. METFORMIN [Concomitant]
     Active Substance: METFORMIN HYDROCHLORIDE
  6. GABAPENTIN [Concomitant]
     Active Substance: GABAPENTIN
  7. SIMVASTATIN [Concomitant]
     Active Substance: SIMVASTATIN
  8. JANUVIA [Concomitant]
     Active Substance: SITAGLIPTIN PHOSPHATE
  9. SPIRIVA [Concomitant]
     Active Substance: TIOTROPIUM BROMIDE MONOHYDRATE
  10. TRAMADOL [Concomitant]
     Active Substance: TRAMADOL
  11. ACTOS [Concomitant]
     Active Substance: PIOGLITAZONE HYDROCHLORIDE
  12. LOVAZA [Concomitant]
     Active Substance: OMEGA-3-ACID ETHYL ESTERS
  13. LISINOPRIL [Concomitant]
     Active Substance: LISINOPRIL
  14. NITROSTAT [Concomitant]
     Active Substance: NITROGLYCERIN
  15. TRICOR [Concomitant]
     Active Substance: FENOFIBRATE
  16. NAPROXEN [Concomitant]
     Active Substance: NAPROXEN
  17. HUMALOG [Concomitant]
     Active Substance: INSULIN LISPRO
  18. DILTIAZEM [Concomitant]
     Active Substance: DILTIAZEM
  19. NEURONTIN [Concomitant]
     Active Substance: GABAPENTIN
  20. AMBIEN [Concomitant]
     Active Substance: ZOLPIDEM TARTRATE
  21. ALBUTEROL [Concomitant]
     Active Substance: ALBUTEROL
  22. ULTRACET [Concomitant]
     Active Substance: ACETAMINOPHEN\TRAMADOL HYDROCHLORIDE
  23. LANTUS [Concomitant]
     Active Substance: INSULIN GLARGINE
  24. VITAMIN D3 [Concomitant]
     Active Substance: CHOLECALCIFEROL
  25. ZOLPIDEM [Concomitant]
     Active Substance: ZOLPIDEM TARTRATE
  26. FAMOTIDINE [Concomitant]
     Active Substance: FAMOTIDINE
  27. TIZANIDINE [Concomitant]
     Active Substance: TIZANIDINE
  28. CLONAZEPAM [Concomitant]
     Active Substance: CLONAZEPAM
  29. TERAZOSIN [Concomitant]
     Active Substance: TERAZOSIN HYDROCHLORIDE
  30. VANCOMYCIN [Concomitant]
     Active Substance: VANCOMYCIN
  31. PREDNISONE [Concomitant]
     Active Substance: PREDNISONE
  32. WARFARIN [Concomitant]
     Active Substance: WARFARIN
  33. RENAGEL [Concomitant]
     Active Substance: SEVELAMER HYDROCHLORIDE
  34. MELATONIN [Concomitant]
     Active Substance: MELATONIN
  35. BENADRYL [Concomitant]
     Active Substance: DIPHENHYDRAMINE HYDROCHLORIDE

REACTIONS (9)
  - Hypoxia [Fatal]
  - Pulmonary oedema [Fatal]
  - End stage renal disease [Fatal]
  - Chronic obstructive pulmonary disease [Fatal]
  - Chronic kidney disease [Unknown]
  - Renal failure [Unknown]
  - Acute kidney injury [Unknown]
  - Nephrogenic anaemia [Unknown]
  - Chronic kidney disease-mineral and bone disorder [Unknown]

NARRATIVE: CASE EVENT DATE: 20150101
